FAERS Safety Report 4344424-X (Version None)
Quarter: 2004Q2

REPORT INFORMATION
  Report Type: 
  Country: None (occurrence: None)
  Receive Date: 20040419
  Receipt Date: 20040408
  Transmission Date: 20050107
  Serious: Yes (Hospitalization)
  Sender: FDA-Public Use
  Company Number: FR-JNJFOC-20040402356

PATIENT
  Age: 18 Year
  Sex: Female

DRUGS (4)
  1. ACETAMINOPHEN AND TRAMADOL HCL [Suspect]
     Dates: start: 20040213, end: 20040213
  2. ANTADYS (FLURBIPROFEN) [Suspect]
     Dosage: ORAL
     Route: 048
     Dates: start: 20040213, end: 20040213
  3. VOGALENE (METOPIMAZINE) [Concomitant]
  4. SPASFON (SPASFON) [Concomitant]

REACTIONS (5)
  - DRUG INTERACTION [None]
  - ERYTHEMA [None]
  - GASTRIC ULCER [None]
  - GASTRITIS [None]
  - OESOPHAGEAL ULCER [None]
